FAERS Safety Report 8790900 (Version 1)
Quarter: 2012Q4

REPORT INFORMATION
  Report Type: Spontaneous
  Country: JP (occurrence: None)
  Receive Date: 20120910
  Receipt Date: 20120910
  Transmission Date: 20130627
  Serious: Yes (Hospitalization)
  Sender: FDA-Public Use
  Company Number: INT_00114_2012

PATIENT
  Age: 15 Year
  Sex: Female

DRUGS (3)
  1. CEFTRIAXONE [Suspect]
     Indication: VOCAL CORD INFLAMMATION
     Route: 042
  2. CEFDITOREN PIVOXIL [Suspect]
     Dosage: df oral
     Route: 048
  3. CEFDITOREN PIVOXIL [Suspect]
     Dosage: df oral
     Route: 048

REACTIONS (3)
  - Anaphylactic reaction [None]
  - Hypoxia [None]
  - Skin test positive [None]
